FAERS Safety Report 4696924-0 (Version None)
Quarter: 2005Q2

REPORT INFORMATION
  Report Type: 
  Country: None (occurrence: None)
  Receive Date: 20050622
  Receipt Date: 20050426
  Transmission Date: 20051028
  Serious: Yes (Death, Other)
  Sender: FDA-Public Use
  Company Number: JP-BRISTOL-MYERS SQUIBB COMPANY-12948980

PATIENT
  Age: 77 Year
  Sex: Male

DRUGS (3)
  1. HYDREA [Suspect]
     Indication: ESSENTIAL THROMBOCYTHAEMIA
     Route: 048
     Dates: start: 19970901, end: 20031201
  2. ASPIRIN [Suspect]
     Route: 048
  3. PREDONINE [Suspect]
     Route: 048

REACTIONS (2)
  - BEHCET'S SYNDROME [None]
  - PNEUMONIA FUNGAL [None]
